FAERS Safety Report 25784764 (Version 1)
Quarter: 2025Q3

REPORT INFORMATION
  Report Type: Report from Study
  Country: US (occurrence: US)
  Receive Date: 20250910
  Receipt Date: 20250910
  Transmission Date: 20251020
  Serious: Yes (Other)
  Sender: ABBVIE
  Company Number: US-ABBVIE-6450025

PATIENT
  Age: 47 Year
  Sex: Female
  Weight: 80 kg

DRUGS (7)
  1. RINVOQ [Suspect]
     Active Substance: UPADACITINIB
     Indication: Rheumatoid arthritis
     Route: 048
     Dates: start: 20200528
  2. CYMBALTA [Concomitant]
     Active Substance: DULOXETINE HYDROCHLORIDE
     Indication: Product used for unknown indication
  3. TRILEPTAL [Concomitant]
     Active Substance: OXCARBAZEPINE
     Indication: Product used for unknown indication
  4. COVID-19 vaccine [Concomitant]
     Indication: COVID-19 immunisation
     Dates: start: 20210406, end: 20210406
  5. COVID-19 vaccine [Concomitant]
     Indication: COVID-19 immunisation
     Dates: start: 20210504, end: 20210504
  6. COVID-19 vaccine [Concomitant]
     Indication: COVID-19 immunisation
     Dates: start: 20211213, end: 20211213
  7. COVID-19 vaccine [Concomitant]
     Indication: COVID-19 immunisation
     Dates: start: 20221127, end: 20221127

REACTIONS (1)
  - Tendon operation [Unknown]

NARRATIVE: CASE EVENT DATE: 20250226
